FAERS Safety Report 8558831-2 (Version None)
Quarter: 2012Q3

REPORT INFORMATION
  Report Type: 
  Country: None (occurrence: None)
  Receive Date: 20120801
  Receipt Date: 20120727
  Transmission Date: 20120928
  Serious: Yes (Hospitalization)
  Sender: FDA-Public Use
  Company Number: US-009507513-1207USA011999

PATIENT

DRUGS (11)
  1. KETOCONAZOLE [Concomitant]
  2. TRIDESONIT [Concomitant]
  3. PANTOPRAZOLE SODIUM [Suspect]
  4. FERROUS SULFATE TAB [Concomitant]
  5. VENTOLINE (ALBUTEROL SULFATE) [Concomitant]
  6. FORADIL [Suspect]
  7. FUROSEMIDE [Suspect]
  8. BUDESONIDE [Suspect]
  9. VALSARTAN [Concomitant]
  10. SINGULAIR [Suspect]
  11. FLECAINIDE ACETATE [Concomitant]

REACTIONS (13)
  - BIOPSY SKIN ABNORMAL [None]
  - BLOOD IMMUNOGLOBULIN G DECREASED [None]
  - PEMPHIGOID [None]
  - EOSINOPHIL COUNT INCREASED [None]
  - PRURIGO [None]
  - URTICARIA [None]
  - NAUSEA [None]
  - VOMITING [None]
  - RASH GENERALISED [None]
  - BLOOD IMMUNOGLOBULIN M DECREASED [None]
  - RASH ERYTHEMATOUS [None]
  - RASH MACULO-PAPULAR [None]
  - DERMATITIS BULLOUS [None]
